FAERS Safety Report 6017669-0 (Version None)
Quarter: 2008Q4

REPORT INFORMATION
  Report Type: 
  Country: None (occurrence: None)
  Receive Date: 20081223
  Receipt Date: 20081212
  Transmission Date: 20090506
  Serious: Yes (Other)
  Sender: FDA-Public Use
  Company Number: RS-ROCHE-602537

PATIENT
  Sex: Female

DRUGS (1)
  1. BONIVA [Suspect]
     Indication: OSTEOPOROSIS
     Dosage: FORM REPORTED AS PFS. STRENGTH AND FORMULATION REPORTED AS 3 MG/ML.
     Route: 042
     Dates: start: 20081202, end: 20081202

REACTIONS (2)
  - ARRHYTHMIA [None]
  - NAUSEA [None]
